FAERS Safety Report 21495570 (Version 1)
Quarter: 2022Q4

REPORT INFORMATION
  Report Type: Spontaneous
  Country: GB (occurrence: GB)
  Receive Date: 20221022
  Receipt Date: 20221022
  Transmission Date: 20230113
  Serious: Yes (Other)
  Sender: FDA-Public Use
  Company Number: None

PATIENT
  Age: 80 Year
  Sex: Male
  Weight: 80 kg

DRUGS (6)
  1. ATORVASTATIN [Suspect]
     Active Substance: ATORVASTATIN
     Indication: Blood cholesterol increased
     Dosage: AT NIGHT
     Route: 048
     Dates: start: 20220131
  2. ASPIRIN [Concomitant]
     Active Substance: ASPIRIN
     Dosage: ONE TABLET DISSOLVED IN WATER
     Dates: start: 20220131
  3. HYDROCORTISONE [Concomitant]
     Active Substance: HYDROCORTISONE
     Dosage: APPLY THINLY... FOR FLAR...
     Dates: start: 20220131
  4. NICORANDIL [Concomitant]
     Active Substance: NICORANDIL
     Dates: start: 20220131
  5. ACETAMINOPHEN [Concomitant]
     Active Substance: ACETAMINOPHEN
     Indication: Pain
     Dosage: WHEN REQUIRED (PAIN OR FEVER...
     Dates: start: 20220131
  6. RAMIPRIL [Concomitant]
     Active Substance: RAMIPRIL
     Dosage: 1 CAP
     Dates: start: 20220131

REACTIONS (1)
  - Necrotising myositis [Recovered/Resolved with Sequelae]

NARRATIVE: CASE EVENT DATE: 20220819
